FAERS Safety Report 17223874 (Version 2)
Quarter: 2020Q4

REPORT INFORMATION
  Report Type: Report from Study
  Country: AT (occurrence: AT)
  Receive Date: 20200102
  Receipt Date: 20201214
  Transmission Date: 20210113
  Serious: Yes (Other)
  Sender: FDA-Public Use
  Company Number: AT-TEVA-2019-AT-1159998

PATIENT
  Age: 48 Year
  Sex: Female
  Weight: 55 kg

DRUGS (5)
  1. CRESEMBA [Suspect]
     Active Substance: ISAVUCONAZONIUM SULFATE
     Dosage: 200 MG, 3X/DAY (LOADING DOSE OF 200 MG, THREE TIMES DAILY (600 MG))
     Route: 042
     Dates: start: 20180329, end: 20180330
  2. PIPERACILLIN SODIUM,TAZOBACTAM SODIUM [Suspect]
     Active Substance: PIPERACILLIN SODIUM\TAZOBACTAM SODIUM
     Indication: PNEUMONIA
     Dosage: UNK
     Route: 042
     Dates: start: 20180326, end: 20180403
  3. CRESEMBA [Suspect]
     Active Substance: ISAVUCONAZONIUM SULFATE
     Indication: ASPERGILLUS INFECTION
     Dosage: 200 MG
     Route: 048
     Dates: start: 20180417
  4. OSELTAMIVIR [Suspect]
     Active Substance: OSELTAMIVIR
     Indication: INFLUENZA
     Dosage: UNK
     Route: 048
     Dates: start: 20180328, end: 20180417
  5. CRESEMBA [Suspect]
     Active Substance: ISAVUCONAZONIUM SULFATE
     Dosage: 200 MILLIGRAM DAILY; 200 MG, 1X/DAY (MAINTENANCE DOSE)
     Route: 042
     Dates: start: 20180331, end: 20180417

REACTIONS (4)
  - Off label use [Unknown]
  - Underdose [Unknown]
  - Inappropriate schedule of product administration [Unknown]
  - Leukopenia [Recovered/Resolved]

NARRATIVE: CASE EVENT DATE: 20180329
